FAERS Safety Report 5799269-0 (Version None)
Quarter: 2008Q3

REPORT INFORMATION
  Report Type: 
  Country: None (occurrence: None)
  Receive Date: 20080702
  Receipt Date: 20080623
  Transmission Date: 20090109
  Serious: Yes (Life-Threatening, Hospitalization)
  Sender: FDA-Public Use
  Company Number: DK-PFIZER INC-2008052052

PATIENT
  Sex: Male

DRUGS (2)
  1. SALAZOPYRIN [Suspect]
     Indication: ARTHRITIS REACTIVE
     Route: 048
     Dates: start: 20080415, end: 20080513
  2. PREDNISOLONE [Concomitant]
     Dosage: DAILY DOSE:7.5MG
     Route: 048

REACTIONS (1)
  - GRANULOCYTOPENIA [None]
